FAERS Safety Report 15218571 (Version 1)
Quarter: 2018Q3

REPORT INFORMATION
  Report Type: Spontaneous
  Country: US (occurrence: US)
  Receive Date: 20180730
  Receipt Date: 20180730
  Transmission Date: 20181010
  Serious: Yes (Other)
  Sender: FDA-Public Use
  Company Number: US-AMGEN-USASP2018100377

PATIENT

DRUGS (1)
  1. REPATHA [Suspect]
     Active Substance: EVOLOCUMAB
     Indication: PRODUCT USED FOR UNKNOWN INDICATION
     Dosage: UNK
     Route: 065
     Dates: start: 20180427

REACTIONS (15)
  - Pain [Recovering/Resolving]
  - Depression [Unknown]
  - Myalgia [Recovering/Resolving]
  - Nausea [Recovering/Resolving]
  - Swelling face [Unknown]
  - Back pain [Recovering/Resolving]
  - Abdominal distension [Not Recovered/Not Resolved]
  - Muscle rigidity [Recovering/Resolving]
  - Pain in extremity [Recovering/Resolving]
  - Injection site mass [Recovering/Resolving]
  - Somnolence [Recovering/Resolving]
  - Hypophagia [Unknown]
  - Headache [Recovering/Resolving]
  - Gait disturbance [Recovering/Resolving]
  - Joint dislocation [Unknown]

NARRATIVE: CASE EVENT DATE: 2018
